FAERS Safety Report 9956954 (Version 1)
Quarter: 2014Q1

REPORT INFORMATION
  Report Type: Spontaneous
  Country: US (occurrence: US)
  Receive Date: 20140304
  Receipt Date: 20140304
  Transmission Date: 20141002
  Serious: No
  Sender: FDA-Public Use
  Company Number: US-ABBVIE-13P-163-1104938-00

PATIENT
  Age: 38 Year
  Sex: Female
  Weight: 118.95 kg

DRUGS (8)
  1. HUMIRA [Suspect]
     Indication: ANKYLOSING SPONDYLITIS
     Route: 058
     Dates: start: 20120917, end: 20130123
  2. HUMIRA [Suspect]
     Route: 058
     Dates: start: 20130123
  3. CELEBREX [Concomitant]
     Indication: PRODUCT USED FOR UNKNOWN INDICATION
     Dates: start: 201101
  4. FENOFIBRATE [Concomitant]
     Indication: PRODUCT USED FOR UNKNOWN INDICATION
  5. LYRICA [Concomitant]
     Indication: PRODUCT USED FOR UNKNOWN INDICATION
  6. TRIAMTERENE/HCTZ [Concomitant]
     Indication: PRODUCT USED FOR UNKNOWN INDICATION
     Dosage: 75-50
  7. CYCLOBENZAPRINE [Concomitant]
     Indication: PRODUCT USED FOR UNKNOWN INDICATION
     Dosage: AT NIGHT
  8. VITAMIN D2 [Concomitant]
     Indication: PRODUCT USED FOR UNKNOWN INDICATION

REACTIONS (4)
  - Musculoskeletal stiffness [Recovering/Resolving]
  - Drug effect decreased [Not Recovered/Not Resolved]
  - Back pain [Recovering/Resolving]
  - Unevaluable event [Not Recovered/Not Resolved]
